FAERS Safety Report 6265483-3 (Version None)
Quarter: 2009Q3

REPORT INFORMATION
  Report Type: 
  Country: None (occurrence: None)
  Receive Date: 20090713
  Receipt Date: 20090706
  Transmission Date: 20100115
  Serious: Yes (Death)
  Sender: FDA-Public Use
  Company Number: PHHY2008IE23136

PATIENT
  Sex: Female

DRUGS (5)
  1. CLOZARIL [Suspect]
     Indication: SCHIZOPHRENIA
     Dosage: UNK
     Dates: start: 20001024
  2. ZOLPIDEM [Concomitant]
  3. RISPERIDONE [Concomitant]
  4. DIAZEPAM [Concomitant]
  5. INHALERS [Concomitant]

REACTIONS (6)
  - ARTERIOSCLEROSIS CORONARY ARTERY [None]
  - CEREBRAL ARTERIOSCLEROSIS [None]
  - CORONARY ARTERY STENOSIS [None]
  - HEPATIC STEATOSIS [None]
  - RENAL CYST [None]
  - SUDDEN CARDIAC DEATH [None]
